FAERS Safety Report 8847254 (Version 1)
Quarter: 2012Q4

REPORT INFORMATION
  Report Type: 
  Country: US (occurrence: US)
  Receive Date: 20121018
  Receipt Date: 20121018
  Transmission Date: 20130627
  Serious: Yes (Death)
  Sender: FDA-Public Use
  Company Number: US-MYLANLABS-2009S1008253

PATIENT
  Age: 46 Year
  Sex: Male
  Weight: 113.4 kg

DRUGS (5)
  1. FENTANYL TRANSDERMAL SYSTEM [Suspect]
     Indication: PAIN
     Dosage: q3d
     Route: 062
     Dates: start: 200705, end: 20070510
  2. ALPRAZOLAM [Suspect]
     Route: 048
  3. METHADONE [Suspect]
  4. TIZANIDINE HYDROCHLORIDE [Concomitant]
     Route: 048
  5. TRIAZOLAM [Concomitant]
     Route: 048

REACTIONS (2)
  - Toxicity to various agents [Fatal]
  - Bronchopneumonia [Fatal]
